FAERS Safety Report 21094185 (Version 1)
Quarter: 2022Q3

REPORT INFORMATION
  Report Type: Other
  Country: US (occurrence: None)
  Receive Date: 20220718
  Receipt Date: 20220718
  Transmission Date: 20221027
  Serious: Yes (Other)
  Sender: FDA-Public Use
  Company Number: US-ROCHE-3137771

PATIENT
  Sex: Male

DRUGS (1)
  1. XELODA [Suspect]
     Active Substance: CAPECITABINE
     Indication: Colorectal cancer metastatic
     Dosage: TAKE 3 TABLET(S) BY MOUTH EVERY MORNING AND TAKE 2 TABLET(S) BY MOUTH EVERY EVENING 2 WEEK(S) ON, 1
     Route: 048

REACTIONS (1)
  - Blindness [Unknown]
